FAERS Safety Report 5120319-9 (Version None)
Quarter: 2007Q1

REPORT INFORMATION
  Report Type: 
  Country: None (occurrence: None)
  Receive Date: 20061002
  Receipt Date: 20061002
  Transmission Date: 20070707
  Serious: Yes (Other)
  Sender: FDA-Public Use
  Company Number: None

PATIENT
  Age: 28 Year
  Sex: Male
  Weight: 123.3784 kg

DRUGS (1)
  1. ZICAM COLD REMEDY [Suspect]
     Dosage: ONE SPRAY 1 NASAL
     Route: 045
     Dates: start: 20060927, end: 20060927

REACTIONS (5)
  - AGEUSIA [None]
  - ANOSMIA [None]
  - LACRIMATION INCREASED [None]
  - NASAL DISCOMFORT [None]
  - PAIN [None]
